FAERS Safety Report 19744669 (Version 1)
Quarter: 2021Q3

REPORT INFORMATION
  Report Type: Spontaneous
  Country: US (occurrence: US)
  Receive Date: 20210823
  Receipt Date: 20210823
  Transmission Date: 20211014
  Serious: No
  Sender: FDA-Public Use
  Company Number: None

PATIENT
  Age: 24 Year
  Sex: Female
  Weight: 63.5 kg

DRUGS (4)
  1. MIRENA [Suspect]
     Active Substance: LEVONORGESTREL
     Dates: start: 20161101, end: 20170301
  2. VITAMINS [Concomitant]
     Active Substance: VITAMINS
  3. ALLERGY MEDICNE [Concomitant]
  4. ADDERALL [Concomitant]
     Active Substance: AMPHETAMINE ASPARTATE\AMPHETAMINE SULFATE\DEXTROAMPHETAMINE SACCHARATE\DEXTROAMPHETAMINE SULFATE

REACTIONS (7)
  - Middle insomnia [None]
  - Cold sweat [None]
  - Depression [None]
  - Weight increased [None]
  - Complication associated with device [None]
  - Pyrexia [None]
  - Uterine rupture [None]

NARRATIVE: CASE EVENT DATE: 20180301
